FAERS Safety Report 8825740 (Version 8)
Quarter: 2013Q2

REPORT INFORMATION
  Report Type: Spontaneous
  Country: US (occurrence: US)
  Receive Date: 20121004
  Receipt Date: 20130603
  Transmission Date: 20140414
  Serious: Yes (Other)
  Sender: FDA-Public Use
  Company Number: US-ASTRAZENECA-2012SE73751

PATIENT
  Age: 56 Year
  Sex: Male

DRUGS (1)
  1. NEXIUM [Suspect]
     Indication: EROSIVE OESOPHAGITIS
     Route: 048

REACTIONS (13)
  - Oesophageal carcinoma [Unknown]
  - Lung neoplasm malignant [Unknown]
  - Throat cancer [Unknown]
  - Haematemesis [Unknown]
  - Lung disorder [Unknown]
  - Ear disorder [Unknown]
  - Carpal tunnel syndrome [Unknown]
  - Feeling abnormal [Unknown]
  - Gastrooesophageal reflux disease [Unknown]
  - Dyspepsia [Unknown]
  - Intentional drug misuse [Unknown]
  - Drug dose omission [Unknown]
  - Therapeutic response unexpected [Unknown]
